FAERS Safety Report 7267458-4 (Version None)
Quarter: 2011Q1

REPORT INFORMATION
  Report Type: 
  Country: None (occurrence: None)
  Receive Date: 20110201
  Receipt Date: 20110120
  Transmission Date: 20110831
  Serious: Yes (Other)
  Sender: FDA-Public Use
  Company Number: JP-AMGEN-JPNCT2011005553

PATIENT
  Age: 51 Year
  Sex: Female
  Weight: 39 kg

DRUGS (17)
  1. CALCICOL [Concomitant]
     Route: 042
  2. CORTICOSTEROIDS [Concomitant]
     Indication: PROPHYLAXIS
     Route: 065
  3. MAGNESIUM SULFATE [Concomitant]
     Route: 042
  4. PANITUMUMAB [Suspect]
     Indication: COLORECTAL CANCER
     Dosage: UNK
     Route: 041
     Dates: start: 20101109
  5. OXALIPLATIN [Suspect]
     Indication: COLORECTAL CANCER
     Route: 041
     Dates: start: 20101109, end: 20110120
  6. FERROUS CITRATE [Concomitant]
     Route: 048
  7. MAGMITT [Concomitant]
     Route: 048
  8. GRANISETRON HCL [Concomitant]
     Route: 042
  9. FLUOROURACIL [Suspect]
     Indication: COLORECTAL CANCER
     Route: 042
     Dates: start: 20101109, end: 20110120
  10. HIRUDOID SOFT [Concomitant]
     Route: 062
  11. FLUOROURACIL [Suspect]
     Route: 041
     Dates: start: 20101109, end: 20110120
  12. DEXART [Concomitant]
     Route: 042
  13. MINOCYCLINE HYDROCHLORIDE [Concomitant]
     Route: 048
  14. KENALOG [Concomitant]
     Route: 049
  15. LEUCOVORIN CALCIUM [Suspect]
     Indication: COLORECTAL CANCER
     Route: 041
     Dates: start: 20101109, end: 20110120
  16. ANTIHISTAMINES [Concomitant]
     Indication: PROPHYLAXIS
     Route: 065
  17. SENNOSIDE [Concomitant]
     Route: 048

REACTIONS (3)
  - STOMATITIS [None]
  - WHITE BLOOD CELL COUNT DECREASED [None]
  - DERMATITIS ACNEIFORM [None]
